FAERS Safety Report 16153790 (Version 2)
Quarter: 2019Q3

REPORT INFORMATION
  Report Type: Spontaneous
  Country: US (occurrence: US)
  Receive Date: 20190403
  Receipt Date: 20190704
  Transmission Date: 20191004
  Serious: Yes (Other)
  Sender: FDA-Public Use
  Company Number: US-PFIZER INC-2019131045

PATIENT
  Age: 62 Year
  Sex: Male

DRUGS (3)
  1. GABAPENTIN. [Suspect]
     Active Substance: GABAPENTIN
     Indication: NERVE INJURY
     Dosage: 300 MG, 2X/DAY
     Route: 048
  2. GABAPENTIN. [Suspect]
     Active Substance: GABAPENTIN
     Indication: NEOPLASM MALIGNANT
  3. GABAPENTIN. [Suspect]
     Active Substance: GABAPENTIN
     Indication: PAIN
     Dosage: 300 MG, 1X/DAY
     Route: 048

REACTIONS (9)
  - Amnesia [Recovered/Resolved]
  - Dementia [Recovered/Resolved]
  - Drug hypersensitivity [Unknown]
  - Anger [Recovered/Resolved]
  - Drug ineffective for unapproved indication [Unknown]
  - Vision blurred [Unknown]
  - Off label use [Unknown]
  - Mood swings [Recovered/Resolved]
  - Coordination abnormal [Unknown]
